FAERS Safety Report 11707981 (Version 1)
Quarter: 2015Q4

REPORT INFORMATION
  Report Type: Spontaneous
  Country: US (occurrence: US)
  Receive Date: 20151107
  Receipt Date: 20151107
  Transmission Date: 20160304
  Serious: No
  Sender: FDA-Public Use
  Company Number: US-TEVA-606121ACC

PATIENT
  Age: 39 Year
  Sex: Female
  Weight: 68.1 kg

DRUGS (6)
  1. STRATTERA [Concomitant]
     Active Substance: ATOMOXETINE HYDROCHLORIDE
     Indication: ATTENTION DEFICIT/HYPERACTIVITY DISORDER
  2. VITAMIN B12 [Concomitant]
     Active Substance: CYANOCOBALAMIN
     Indication: SUPPLEMENTATION THERAPY
  3. VITAMIN C [Concomitant]
     Active Substance: ASCORBIC ACID
     Indication: SUPPLEMENTATION THERAPY
  4. FISH OIL [Concomitant]
     Active Substance: FISH OIL
     Indication: SUPPLEMENTATION THERAPY
  5. MULTIVITAMINS [Concomitant]
     Active Substance: VITAMINS
     Indication: SUPPLEMENTATION THERAPY
  6. PARAGARD T 380A [Suspect]
     Active Substance: COPPER
     Indication: CONTRACEPTION
     Dates: start: 201411

REACTIONS (7)
  - Vaginal inflammation [Not Recovered/Not Resolved]
  - Rash [Not Recovered/Not Resolved]
  - Cervix inflammation [Not Recovered/Not Resolved]
  - Pain [Not Recovered/Not Resolved]
  - Allergy to metals [Unknown]
  - Menorrhagia [Not Recovered/Not Resolved]
  - Vulvovaginal rash [Not Recovered/Not Resolved]

NARRATIVE: CASE EVENT DATE: 201412
